FAERS Safety Report 23004381 (Version 2)
Quarter: 2023Q4

REPORT INFORMATION
  Report Type: Spontaneous
  Country: RU (occurrence: RU)
  Receive Date: 20230928
  Receipt Date: 20231004
  Transmission Date: 20240110
  Serious: Yes (Other)
  Sender: FDA-Public Use
  Company Number: RU-SA-SAC20230926000131

PATIENT
  Age: 35 Year
  Sex: Female
  Weight: 68 kg

DRUGS (1)
  1. APIDRA SOLOSTAR [Suspect]
     Active Substance: INSULIN GLULISINE
     Dosage: 30 IU, Q5D
     Route: 058
     Dates: start: 20230613, end: 202309

REACTIONS (1)
  - Insulin resistance [Recovered/Resolved]

NARRATIVE: CASE EVENT DATE: 20230601
